FAERS Safety Report 16593113 (Version 1)
Quarter: 2019Q3

REPORT INFORMATION
  Report Type: Spontaneous
  Country: US (occurrence: US)
  Receive Date: 20190718
  Receipt Date: 20190718
  Transmission Date: 20191004
  Serious: No
  Sender: FDA-Public Use
  Company Number: US-TEVA-2019-US-1076364

PATIENT
  Sex: Male

DRUGS (1)
  1. HYDROCHLOROTHIAZIDE W/LOSARTAN [Suspect]
     Active Substance: HYDROCHLOROTHIAZIDE\LOSARTAN
     Indication: HYPERTENSION
     Dosage: DOSE STRENGTH: LOSARTAN POTASSIUM 100 MG HYDROCHLOROTHIAZIDE 25 MG
     Route: 065

REACTIONS (1)
  - Dizziness [Unknown]
